FAERS Safety Report 8407242-9 (Version None)
Quarter: 2012Q2

REPORT INFORMATION
  Report Type: 
  Country: None (occurrence: None)
  Receive Date: 20120323
  Receipt Date: 20110720
  Transmission Date: 20120825
  Serious: Yes (Hospitalization, Other)
  Sender: FDA-Public Use
  Company Number: 163-21880-11050359

PATIENT
  Age: 63 Year
  Sex: Female
  Weight: 90.7194 kg

DRUGS (12)
  1. BYSTOLIC [Concomitant]
  2. PERCOCET [Concomitant]
  3. VELCADE [Suspect]
     Indication: MULTIPLE MYELOMA
     Dosage: 2.4 MG, DAYS 1 AND 8, IV
     Route: 042
     Dates: start: 20110523
  4. VELCADE [Suspect]
     Indication: MULTIPLE MYELOMA
     Dosage: 2.4 MG, DAYS 1 AND 8, IV
     Route: 042
     Dates: start: 20110516
  5. VELCADE [Suspect]
     Indication: MULTIPLE MYELOMA
     Dosage: 2.4 MG, DAYS 1 AND 8, IV
     Route: 042
     Dates: start: 20110620
  6. VELCADE [Suspect]
     Indication: MULTIPLE MYELOMA
     Dosage: 2.4 MG, DAYS 1 AND 8, IV
     Route: 042
     Dates: start: 20110418
  7. VELCADE [Suspect]
     Indication: MULTIPLE MYELOMA
     Dosage: 2.4 MG, DAYS 1 AND 8, IV
     Route: 042
     Dates: start: 20110425
  8. VELCADE [Suspect]
     Indication: MULTIPLE MYELOMA
     Dosage: 2.4 MG, DAYS 1 AND 8, IV
     Route: 042
     Dates: start: 20110613
  9. REVLIMID [Suspect]
     Indication: MULTIPLE MYELOMA
     Dosage: 25 MG, DAILY FOR 14 DAYS OFF 7 DAYS, PO ; 20 MG, DAILY FOR 14 DAYS OFF 7 DAYS, PO ; 15 MG, DAILY, PO
     Route: 048
     Dates: start: 20110501
  10. REVLIMID [Suspect]
     Indication: MULTIPLE MYELOMA
     Dosage: 25 MG, DAILY FOR 14 DAYS OFF 7 DAYS, PO ; 20 MG, DAILY FOR 14 DAYS OFF 7 DAYS, PO ; 15 MG, DAILY, PO
     Route: 048
     Dates: start: 20110601
  11. REVLIMID [Suspect]
     Indication: MULTIPLE MYELOMA
     Dosage: 25 MG, DAILY FOR 14 DAYS OFF 7 DAYS, PO ; 20 MG, DAILY FOR 14 DAYS OFF 7 DAYS, PO ; 15 MG, DAILY, PO
     Route: 048
     Dates: start: 20110418
  12. ZOMETA [Concomitant]

REACTIONS (4)
  - WOUND INFECTION [None]
  - NEUTROPENIA [None]
  - LEUKOPENIA [None]
  - PYREXIA [None]
